FAERS Safety Report 9841563 (Version 1)
Quarter: 2013Q4

REPORT INFORMATION
  Report Type: Spontaneous
  Country: US (occurrence: None)
  Receive Date: 20131219
  Receipt Date: 20131219
  Transmission Date: 20140711
  Serious: Yes (Hospitalization)
  Sender: FDA-Public Use
  Company Number: 163-20785-13053407

PATIENT
  Age: 71 Year
  Sex: Male
  Weight: 99.79 kg

DRUGS (11)
  1. THALOMID [Suspect]
     Indication: PLASMA CELL MYELOMA
     Route: 048
     Dates: start: 20120818
  2. HUMULIN (NOVOLIN 20/80) [Concomitant]
  3. DEXAMETHASONE (DEXAMETHASONE) [Concomitant]
  4. FUROSEMIDE (FUROSEMIDE) [Concomitant]
  5. GABAPENTIN (GABAPENTIN) [Concomitant]
  6. METFORMIN (METFORMIN) [Concomitant]
  7. SUCRALFATE (SUCRALFATE) UNKNOWN [Concomitant]
  8. OMEPRAZOLE (OMEPRAZOLE) [Concomitant]
  9. GLIMEPIRIDE (GLIMEPIRIDE) [Concomitant]
  10. CRESTOR (ROSUVASTATIN) [Concomitant]
  11. LOSARTAN POTASSIUM (LOSARTAN POTASSIUM) [Concomitant]

REACTIONS (4)
  - Pneumonia [None]
  - Constipation [None]
  - Paraesthesia [None]
  - Somnolence [None]
